FAERS Safety Report 5145030-X (Version None)
Quarter: 2006Q4

REPORT INFORMATION
  Report Type: 
  Country: None (occurrence: None)
  Receive Date: 20061107
  Receipt Date: 20020322
  Transmission Date: 20070319
  Serious: Yes (Death, Hospitalization, Other)
  Sender: FDA-Public Use
  Company Number: GB-GLAXOSMITHKLINE-B0263711A

PATIENT
  Age: 5 Year
  Sex: Female

DRUGS (6)
  1. FLIXOTIDE [Suspect]
     Indication: ASTHMA
     Route: 055
     Dates: start: 19980101
  2. BETNESOL [Suspect]
     Dosage: 2DROP TWICE PER DAY
     Route: 061
  3. SALMETEROL XINAFOATE [Concomitant]
     Indication: ASTHMA
     Dosage: 50MCG TWICE PER DAY
     Route: 055
  4. SODIUM CROMOGLYCATE [Concomitant]
     Indication: ASTHMA
     Dosage: 10MG FOUR TIMES PER DAY
  5. SLO-PHYLLIN [Concomitant]
     Dosage: 60MG TWICE PER DAY
  6. SINGULAIR [Concomitant]

REACTIONS (14)
  - ADRENAL INSUFFICIENCY [None]
  - BLOOD CORTISOL DECREASED [None]
  - BRAIN OEDEMA [None]
  - CARDIAC ARREST [None]
  - CONVULSION [None]
  - DEPRESSED LEVEL OF CONSCIOUSNESS [None]
  - INFLUENZA LIKE ILLNESS [None]
  - INTRACRANIAL PRESSURE INCREASED [None]
  - LOSS OF CONSCIOUSNESS [None]
  - NERVE COMPRESSION [None]
  - NEUROLOGICAL SYMPTOM [None]
  - PHARYNGOLARYNGEAL PAIN [None]
  - VISUAL DISTURBANCE [None]
  - VOMITING [None]
